FAERS Safety Report 17968071 (Version 3)
Quarter: 2020Q3

REPORT INFORMATION
  Report Type: Report from Study
  Country: US (occurrence: US)
  Receive Date: 20200701
  Receipt Date: 20200820
  Transmission Date: 20201103
  Serious: Yes (Hospitalization, Other)
  Sender: FDA-Public Use
  Company Number: US-PFIZER INC-2020203682

PATIENT
  Age: 70 Year
  Sex: Female

DRUGS (2)
  1. BOSULIF [Suspect]
     Active Substance: BOSUTINIB MONOHYDRATE
     Dosage: 100 MG
     Dates: start: 2020, end: 2020
  2. BOSULIF [Suspect]
     Active Substance: BOSUTINIB MONOHYDRATE
     Dosage: 100 MG
     Dates: start: 20200517, end: 202006

REACTIONS (8)
  - Dysgeusia [Unknown]
  - Abdominal pain lower [Unknown]
  - Spleen disorder [Unknown]
  - Diarrhoea [Unknown]
  - Cerebral haemorrhage [Unknown]
  - Arthralgia [Unknown]
  - Nausea [Unknown]
  - Constipation [Unknown]

NARRATIVE: CASE EVENT DATE: 2020
